FAERS Safety Report 21076793 (Version 1)
Quarter: 2022Q3

REPORT INFORMATION
  Report Type: Spontaneous
  Country: US (occurrence: None)
  Receive Date: 20220713
  Receipt Date: 20220713
  Transmission Date: 20221026
  Serious: Yes (Other)
  Sender: FDA-Public Use
  Company Number: None

PATIENT
  Age: 38 Year
  Sex: Female
  Weight: 64.62 kg

DRUGS (6)
  1. MOLNUPIRAVIR [Suspect]
     Active Substance: MOLNUPIRAVIR
     Indication: COVID-19
     Dosage: FREQUENCY : TWICE A DAY;?
     Route: 048
     Dates: start: 20220706, end: 20220711
  2. Slynd 4mg [Concomitant]
  3. GABAPENTIN [Concomitant]
     Active Substance: GABAPENTIN
  4. FAMOTIDINE [Concomitant]
     Active Substance: FAMOTIDINE
  5. Aspirin EC 81mg [Concomitant]
  6. Ondansetron 4mg ODT [Concomitant]

REACTIONS (1)
  - Sunburn [None]

NARRATIVE: CASE EVENT DATE: 20220710
